FAERS Safety Report 8964720 (Version 1)
Quarter: 2012Q4

REPORT INFORMATION
  Report Type: 
  Country: IT (occurrence: IT)
  Receive Date: 20121213
  Receipt Date: 20121213
  Transmission Date: 20130627
  Serious: Yes (Life-Threatening)
  Sender: FDA-Public Use
  Company Number: IT-BAYER-2012-130573

PATIENT
  Age: 72 Year
  Sex: Male

DRUGS (2)
  1. ACETYLSALICYLIC ACID({=100 MG) [Suspect]
     Indication: BENIGN ESSENTIAL HYPERTENSION
     Dosage: 700 mg, ONCE
     Route: 048
     Dates: start: 20121028, end: 20121028
  2. METOPROLOL [Suspect]
     Dosage: 700 mg, ONCE
     Route: 048
     Dates: start: 20121028, end: 20121028

REACTIONS (3)
  - Bradycardia [Recovering/Resolving]
  - Atrioventricular block first degree [Recovering/Resolving]
  - Intentional overdose [Recovering/Resolving]
